FAERS Safety Report 14664609 (Version 1)
Quarter: 2018Q1

REPORT INFORMATION
  Report Type: Spontaneous
  Country: US (occurrence: US)
  Receive Date: 20180319
  Receipt Date: 20180319
  Transmission Date: 20180509
  Serious: Yes (Other)
  Sender: FDA-Public Use
  Company Number: None

PATIENT
  Age: 42 Year
  Sex: Female
  Weight: 90 kg

DRUGS (8)
  1. FORFIVO XL [Suspect]
     Active Substance: BUPROPION HYDROCHLORIDE
     Indication: MAJOR DEPRESSION
     Dosage: ?          QUANTITY:1 CAPSULE(S);?
     Route: 048
     Dates: start: 20180310, end: 20180315
  2. XYZAL [Concomitant]
     Active Substance: LEVOCETIRIZINE DIHYDROCHLORIDE
  3. LEVOTHYROXINE. [Concomitant]
     Active Substance: LEVOTHYROXINE
  4. VIACTIV [Concomitant]
     Active Substance: CALCIUM\VITAMIN D\VITAMIN K5
  5. FERROUS SULFATE. [Concomitant]
     Active Substance: FERROUS SULFATE
  6. ALBUTEROL. [Concomitant]
     Active Substance: ALBUTEROL
  7. SINGULAIR [Concomitant]
     Active Substance: MONTELUKAST SODIUM
  8. XIIDRA [Concomitant]
     Active Substance: LIFITEGRAST

REACTIONS (7)
  - Loss of consciousness [None]
  - Product substitution issue [None]
  - Vomiting [None]
  - Nausea [None]
  - Mydriasis [None]
  - Tremor [None]
  - Chills [None]

NARRATIVE: CASE EVENT DATE: 20180315
